FAERS Safety Report 13895689 (Version 1)
Quarter: 2017Q3

REPORT INFORMATION
  Report Type: Spontaneous
  Country: US (occurrence: US)
  Receive Date: 20170823
  Receipt Date: 20170823
  Transmission Date: 20171127
  Serious: No
  Sender: FDA-Public Use
  Company Number: US-PFIZER INC-2017362866

PATIENT
  Age: 74 Year
  Sex: Female

DRUGS (12)
  1. SULFASALAZINE. [Interacting]
     Active Substance: SULFASALAZINE
     Indication: ARTHRALGIA
     Dosage: 500MG TAKES 3 IN THE MORNING AND 2 IN THE EVENING
     Dates: start: 201707
  2. LOVASTATIN. [Concomitant]
     Active Substance: LOVASTATIN
  3. PREMARIN [Suspect]
     Active Substance: ESTROGENS, CONJUGATED
     Dosage: 1/2 GRAM 3 TIMES A WEEK
     Route: 067
  4. CHONDROITIN/GLUCOSAMINE [Concomitant]
  5. TRAZODONE [Concomitant]
     Active Substance: TRAZODONE HYDROCHLORIDE
  6. GABAPENTIN. [Concomitant]
     Active Substance: GABAPENTIN
  7. PREDNISONE. [Concomitant]
     Active Substance: PREDNISONE
  8. AMLODIPINE [Concomitant]
     Active Substance: AMLODIPINE BESYLATE
  9. BENAZEPRIL [Concomitant]
     Active Substance: BENAZEPRIL HYDROCHLORIDE
  10. OMEPRAZOLE. [Concomitant]
     Active Substance: OMEPRAZOLE
  11. DULOXETINE. [Concomitant]
     Active Substance: DULOXETINE
  12. AZASITE [Concomitant]
     Active Substance: AZITHROMYCIN MONOHYDRATE

REACTIONS (2)
  - Product use issue [Unknown]
  - Drug interaction [Unknown]

NARRATIVE: CASE EVENT DATE: 2017
